FAERS Safety Report 18400243 (Version 5)
Quarter: 2023Q1

REPORT INFORMATION
  Report Type: Spontaneous
  Country: US (occurrence: US)
  Receive Date: 20201019
  Receipt Date: 20230111
  Transmission Date: 20230418
  Serious: No
  Sender: FDA-Public Use
  Company Number: US-PFIZER INC-2020401092

PATIENT
  Age: 74 Year
  Sex: Female
  Weight: 58 kg

DRUGS (2)
  1. IBRANCE [Suspect]
     Active Substance: PALBOCICLIB
     Indication: Breast cancer female
     Dosage: 125 MG, 1X/DAY (STARTED SINCE 3 YEARS AGO, EVENING AFTER DINNER)
     Route: 048
  2. IBRANCE [Suspect]
     Active Substance: PALBOCICLIB
     Dosage: UNK

REACTIONS (11)
  - Malaise [Unknown]
  - Muscle disorder [Unknown]
  - Crying [Unknown]
  - Asthenia [Unknown]
  - Fear [Unknown]
  - Bradykinesia [Unknown]
  - Feeling abnormal [Unknown]
  - Nausea [Recovered/Resolved]
  - Myalgia [Recovered/Resolved]
  - Full blood count abnormal [Unknown]
  - Illness [Unknown]

NARRATIVE: CASE EVENT DATE: 20201001
